FAERS Safety Report 20633000 (Version 1)
Quarter: 2022Q1

REPORT INFORMATION
  Report Type: Spontaneous
  Country: US (occurrence: US)
  Receive Date: 20220324
  Receipt Date: 20220324
  Transmission Date: 20220423
  Serious: No
  Sender: FDA-Public Use
  Company Number: US-UPSHER-SMITH LABORATORIES, LLC-2022USL00028

PATIENT
  Age: 66 Year
  Sex: Female
  Weight: 86.182 kg

DRUGS (27)
  1. PREVALITE [Suspect]
     Active Substance: CHOLESTYRAMINE
     Indication: Diarrhoea
     Dosage: 4 G, 3X/DAY (MORNING, NOON, AND EVENING)
     Route: 048
     Dates: start: 202201
  2. AMANTADINE [Concomitant]
     Active Substance: AMANTADINE
     Dosage: 100 MG, 2X/DAY
  3. BACLOFEN [Concomitant]
     Active Substance: BACLOFEN
     Dosage: 10 MG, 3X/DAY
  4. ATORVASTATIN [Concomitant]
     Active Substance: ATORVASTATIN
     Dosage: 20 MG, 1X/DAY
  5. BUSPIRONE [Concomitant]
     Active Substance: BUSPIRONE HYDROCHLORIDE
     Dosage: 15 MG, 3X/DAY
  6. CALTRATE VITAMIN D [Concomitant]
     Dosage: 600 MG/10 ?G, 2X/DAY
  7. FLUOXETINE [Concomitant]
     Active Substance: FLUOXETINE HYDROCHLORIDE
     Dosage: 80 MG, 2X/DAY
  8. GABAPENTIN [Concomitant]
     Active Substance: GABAPENTIN
     Dosage: 600 MG, 3X/DAY
  9. OMEPRAZOLE [Concomitant]
     Active Substance: OMEPRAZOLE
     Dosage: 20 MG, 1X/DAY
  10. ^LORATADONE^ [Concomitant]
     Dosage: 10 MG, 1X/DAY
  11. MELATONIN [Concomitant]
     Active Substance: MELATONIN
     Dosage: 12 MG, 1X/DAY AT BEDTIME
  12. TAMSULOSIN [Concomitant]
     Active Substance: TAMSULOSIN
     Dosage: 0.4 MG, 1X/DAY
  13. METFORMIN [Concomitant]
     Active Substance: METFORMIN HYDROCHLORIDE
     Dosage: 1000 MG, 2X/DAY
  14. VITAMIN C [Concomitant]
     Active Substance: ASCORBIC ACID
     Dosage: 500 MG, 1X/DAY
  15. VITAMIN D3 [Concomitant]
     Active Substance: CHOLECALCIFEROL
     Dosage: 5000 IU, 1X/DAY
  16. MODAFINIL [Concomitant]
     Active Substance: MODAFINIL
     Dosage: 100 MG, 1X/DAY
  17. FOLIC ACID [Concomitant]
     Active Substance: FOLIC ACID
     Dosage: 0.8 MG, 1X/DAY
  18. TRADJENTA [Concomitant]
     Active Substance: LINAGLIPTIN
     Dosage: 5 MG, 1X/DAY
  19. UNSPECIFIED PROBIOTICS [Concomitant]
     Dosage: 2 DOSAGE UNITS, 1X/DAY
  20. VITAMINS [Concomitant]
     Active Substance: VITAMINS
     Dosage: 2 TABLETS, 1X/DAY
  21. ^VIBRA^ [Concomitant]
     Dosage: 10 MG, 1X/DAY
  22. TYLENOL [Concomitant]
     Active Substance: ACETAMINOPHEN
     Dosage: 1000 MG, AS NEEDED DURING THE DAY
  23. TYLENOL PM + SLEEP AID [Concomitant]
     Dosage: 100-50 MG, 1X/DAY AT BEDTIME
  24. ONDANSETRON [Concomitant]
     Active Substance: ONDANSETRON
     Dosage: 4 MG, 3X/DAY (EVERY 8 HOURS) AS NEEDED
  25. TUMS [Concomitant]
     Active Substance: CALCIUM CARBONATE
     Dosage: UNK, AS NEEDED
  26. GAS-X [Concomitant]
     Active Substance: DIMETHICONE
     Dosage: UNK, AS NEEDED
  27. IMODIUM A-D [Concomitant]
     Active Substance: LOPERAMIDE HYDROCHLORIDE
     Dosage: UNK, AS NEEDED

REACTIONS (2)
  - Peripheral swelling [Not Recovered/Not Resolved]
  - Arthralgia [Not Recovered/Not Resolved]

NARRATIVE: CASE EVENT DATE: 20220101
